FAERS Safety Report 6253155-0 (Version None)
Quarter: 2009Q2

REPORT INFORMATION
  Report Type: 
  Country: None (occurrence: None)
  Receive Date: 20090626
  Receipt Date: 20080911
  Transmission Date: 20091009
  Serious: Yes (Other)
  Sender: FDA-Public Use
  Company Number: 585920

PATIENT
  Sex: Male

DRUGS (4)
  1. XELODA [Suspect]
     Indication: COLON CANCER
  2. VITAMIN B6 [Concomitant]
  3. IMMODIUM (LOPERAMIDE HYDROCHLORIDE) [Concomitant]
  4. ELOXATIN [Concomitant]

REACTIONS (8)
  - APHONIA [None]
  - CANDIDIASIS [None]
  - DIARRHOEA [None]
  - MIGRAINE [None]
  - PALMAR-PLANTAR ERYTHRODYSAESTHESIA SYNDROME [None]
  - RED BLOOD CELL COUNT DECREASED [None]
  - TEMPERATURE INTOLERANCE [None]
  - WHITE BLOOD CELL COUNT DECREASED [None]
